FAERS Safety Report 4500394-2 (Version None)
Quarter: 2004Q4

REPORT INFORMATION
  Report Type: 
  Country: None (occurrence: None)
  Receive Date: 20041112
  Receipt Date: 20041105
  Transmission Date: 20050328
  Serious: Yes (Life-Threatening, Disabling)
  Sender: FDA-Public Use
  Company Number: US-MERCK-0411USA01009

PATIENT
  Age: 70 Year
  Sex: Female

DRUGS (3)
  1. VIOXX [Suspect]
     Indication: ARTHRALGIA
     Route: 048
     Dates: start: 20030901, end: 20031201
  2. ACTONEL [Concomitant]
     Route: 065
  3. LIPITOR [Concomitant]
     Route: 065

REACTIONS (2)
  - HAEMATOCHEZIA [None]
  - HAEMORRHAGE [None]
